FAERS Safety Report 9807466 (Version 1)
Quarter: 2014Q1

REPORT INFORMATION
  Report Type: Spontaneous
  Country: US (occurrence: US)
  Receive Date: 20140110
  Receipt Date: 20140110
  Transmission Date: 20141002
  Serious: No
  Sender: FDA-Public Use
  Company Number: US-PFIZER INC-2014005585

PATIENT
  Sex: Female

DRUGS (1)
  1. METHYLPREDNISOLONE [Suspect]
     Indication: BRONCHITIS
     Dosage: 8 MG, (TAKING TWO TABLET OF 4MG) UNK
     Route: 048
     Dates: start: 20140107

REACTIONS (3)
  - Drug ineffective [Unknown]
  - Product label confusion [Unknown]
  - Dizziness [Unknown]
